FAERS Safety Report 7732344-X (Version None)
Quarter: 2011Q3

REPORT INFORMATION
  Report Type: 
  Country: None (occurrence: None)
  Receive Date: 20110906
  Receipt Date: 20110825
  Transmission Date: 20111222
  Serious: Yes (Hospitalization, Other)
  Sender: FDA-Public Use
  Company Number: JP-BRISTOL-MYERS SQUIBB COMPANY-15983067

PATIENT
  Age: 68 Year
  Sex: Male

DRUGS (12)
  1. DIOVAN [Concomitant]
     Indication: BLOOD PRESSURE MANAGEMENT
     Route: 048
     Dates: start: 20101116, end: 20110510
  2. VALISONE G [Concomitant]
  3. METFORMIN HCL [Concomitant]
     Indication: DIABETES MELLITUS INADEQUATE CONTROL
     Route: 048
     Dates: start: 20101019, end: 20110705
  4. FOSMICIN-S [Concomitant]
  5. INSULIN HUMAN [Concomitant]
  6. AMLODIPINE [Concomitant]
     Indication: BLOOD PRESSURE MANAGEMENT
     Dosage: UNISIA
     Route: 048
     Dates: start: 20101116, end: 20110510
  7. METFORMIN HCL [Suspect]
     Indication: DIABETES MELLITUS
     Route: 048
     Dates: start: 20110706, end: 20110712
  8. UNISIA [Suspect]
     Indication: BLOOD PRESSURE MANAGEMENT
     Route: 048
     Dates: start: 20110511, end: 20110720
  9. CLOBETASOL PROPIONATE [Concomitant]
  10. METFORMIN HCL [Suspect]
     Indication: DIABETES MELLITUS INADEQUATE CONTROL
     Route: 048
     Dates: start: 20110706, end: 20110712
  11. SITAGLIPTIN PHOSPHATE [Suspect]
     Indication: DIABETES MELLITUS INADEQUATE CONTROL
     Route: 048
     Dates: start: 20110511, end: 20110720
  12. LOCOID [Concomitant]

REACTIONS (1)
  - PAPULE [None]
